FAERS Safety Report 18096045 (Version 1)
Quarter: 2020Q3

REPORT INFORMATION
  Report Type: Other
  Country: DK (occurrence: DK)
  Receive Date: 20200731
  Receipt Date: 20200731
  Transmission Date: 20201103
  Serious: Yes (Disabling)
  Sender: FDA-Public Use
  Company Number: DK-CELLTRION INC.-2020DK024762

PATIENT

DRUGS (10)
  1. METHOTREXATE. [Concomitant]
     Active Substance: METHOTREXATE
     Indication: ARTHRITIS
     Dosage: STRENGTH: 2.5MG
     Route: 048
     Dates: start: 20191217
  2. INFLIXIMAB (UNKNOWN) [Suspect]
     Active Substance: INFLIXIMAB
     Dosage: DOSE:EVERY 6TH TO 7TH WEEK STRENGTH: UNKNOWN
     Dates: start: 201303, end: 20171102
  3. INFLIXIMAB (UNKNOWN) [Suspect]
     Active Substance: INFLIXIMAB
     Dosage: DOSE:EVERY 6TH TO 7TH WEEK STRENGTH: UNKNOWN
     Dates: start: 201303, end: 20171102
  4. INFLIXIMAB (UNKNOWN) [Suspect]
     Active Substance: INFLIXIMAB
     Dosage: DOSE:EVERY 6TH TO 7TH WEEK STRENGTH: UNKNOWN
     Dates: start: 201303, end: 20171102
  5. INFLIXIMAB (UNKNOWN) [Suspect]
     Active Substance: INFLIXIMAB
     Dosage: DOSE:EVERY 6TH TO 7TH WEEK STRENGTH: UNKNOWN
     Dates: start: 201303, end: 20171102
  6. PREDNISOLONE. [Concomitant]
     Active Substance: PREDNISOLONE
     Indication: PSORIATIC ARTHROPATHY
     Dosage: DOSE: UNKNOWN STRENGTH: UNKNOWN
     Route: 048
  7. DOLOL [TRAMADOL] [Concomitant]
     Indication: PAIN
     Dosage: STRENGHT: 50 MG DOSE: 1 TABLET AS NECESSRY, MAKSIMUM 6 A DAY.
     Route: 048
  8. INFLIXIMAB (UNKNOWN) [Suspect]
     Active Substance: INFLIXIMAB
     Dosage: DOSE:EVERY 6TH TO 7TH WEEK STRENGTH: UNKNOWN
     Dates: start: 201303, end: 20171102
  9. CODEINE [Concomitant]
     Active Substance: CODEINE
     Indication: PAIN
     Dosage: STRENGTH: 25MG DOSE: 1 TABLET AS NECESSARY, MAKS 4 A DAY.
     Route: 048
  10. INFLIXIMAB (UNKNOWN) [Suspect]
     Active Substance: INFLIXIMAB
     Indication: PSORIATIC ARTHROPATHY
     Dosage: DOSE:EVERY 6TH TO 7TH WEEK STRENGTH: UNKNOWN
     Dates: start: 201303, end: 20171102

REACTIONS (3)
  - Product use issue [Unknown]
  - Demyelination [Not Recovered/Not Resolved]
  - Hemiparesis [Not Recovered/Not Resolved]

NARRATIVE: CASE EVENT DATE: 201711
